FAERS Safety Report 7307273-6 (Version None)
Quarter: 2011Q1

REPORT INFORMATION
  Report Type: 
  Country: None (occurrence: None)
  Receive Date: 20110223
  Receipt Date: 20110215
  Transmission Date: 20110831
  Serious: No
  Sender: FDA-Public Use
  Company Number: US-PFIZER INC-2010146025

PATIENT
  Sex: Female
  Weight: 71 kg

DRUGS (1)
  1. PRISTIQ [Suspect]
     Indication: DEPRESSION
     Dosage: 50 MG, 1X/DAY
     Route: 048
     Dates: start: 20101001

REACTIONS (3)
  - DECREASED APPETITE [None]
  - ABDOMINAL DISTENSION [None]
  - VOMITING [None]
